FAERS Safety Report 13262674 (Version 5)
Quarter: 2018Q1

REPORT INFORMATION
  Report Type: Report from Study
  Country: JP (occurrence: JP)
  Receive Date: 20170223
  Receipt Date: 20180307
  Transmission Date: 20180508
  Serious: Yes (Hospitalization)
  Sender: FDA-Public Use
  Company Number: JP-ACTELION-A-CH2017-149924

PATIENT
  Age: 48 Year
  Sex: Female

DRUGS (23)
  1. FUROSEMIDE. [Suspect]
     Active Substance: FUROSEMIDE
     Indication: PRODUCT USED FOR UNKNOWN INDICATION
     Dosage: UNK
     Route: 042
     Dates: end: 20161121
  2. BONALON [Concomitant]
     Active Substance: ALENDRONATE SODIUM
  3. BIO-THREE [Concomitant]
     Active Substance: HERBALS
  4. FERROMIA [Concomitant]
     Active Substance: SODIUM FERROUS CITRATE
  5. PREDNISOLONE. [Concomitant]
     Active Substance: PREDNISOLONE
  6. TRACLEER [Suspect]
     Active Substance: BOSENTAN
     Dosage: 62.5 MG, OD
     Route: 048
     Dates: start: 20161118
  7. GEBEN [Concomitant]
     Active Substance: SILVER SULFADIAZINE
  8. GASMOTIN [Concomitant]
     Active Substance: MOSAPRIDE CITRATE
  9. PALUX [Concomitant]
     Active Substance: ALPROSTADIL
     Dosage: UNK
     Dates: start: 20170330
  10. ANPLAG [Concomitant]
     Active Substance: SARPOGRELATE
  11. PREDONINE [Concomitant]
     Active Substance: PREDNISOLONE
  12. TRACLEER [Suspect]
     Active Substance: BOSENTAN
     Indication: SCLERODERMA ASSOCIATED DIGITAL ULCER
     Dosage: 62.5 MG, OD
     Route: 048
     Dates: start: 20161020, end: 20161104
  13. SPIRONOLACTON [Suspect]
     Active Substance: SPIRONOLACTONE
     Indication: PRODUCT USED FOR UNKNOWN INDICATION
     Dosage: 50 MG, QD
     Route: 048
  14. CELLCEPT [Suspect]
     Active Substance: MYCOPHENOLATE MOFETIL\MYCOPHENOLATE MOFETIL HYDROCHLORIDE
     Indication: SYSTEMIC LUPUS ERYTHEMATOSUS
     Dosage: UNK
     Route: 065
     Dates: start: 20170309, end: 20170622
  15. PROCYLIN [Concomitant]
     Active Substance: BERAPROST SODIUM
     Dosage: UNK
     Dates: start: 20161218
  16. DIART [Concomitant]
     Active Substance: AZOSEMIDE
  17. KLARICID [Concomitant]
     Active Substance: CLARITHROMYCIN
  18. IMURAN [Suspect]
     Active Substance: AZATHIOPRINE
     Indication: SYSTEMIC LUPUS ERYTHEMATOSUS
     Dosage: UNK
     Route: 065
     Dates: start: 20170119, end: 20170223
  19. HIRUDOID [Concomitant]
     Active Substance: GLYCOSAMINOGLYCANS
  20. CEFAZOLIN [Concomitant]
     Active Substance: CEFAZOLIN
  21. TRACLEER [Suspect]
     Active Substance: BOSENTAN
     Dosage: 62.5 MG, OD
     Route: 048
     Dates: start: 20160825, end: 20160915
  22. TAKECAB [Concomitant]
     Active Substance: VONOPRAZAN FUMURATE
  23. BAKTAR [Concomitant]
     Active Substance: SULFAMETHOXAZOLE\TRIMETHOPRIM

REACTIONS (26)
  - Systemic lupus erythematosus [Recovered/Resolved]
  - Joint contracture [Recovering/Resolving]
  - Skin ulcer [Recovering/Resolving]
  - Oedema peripheral [Recovering/Resolving]
  - Hypokalaemia [Recovered/Resolved]
  - Renal impairment [Recovering/Resolving]
  - Pleurisy [Recovering/Resolving]
  - Anaemia [Recovering/Resolving]
  - Nausea [Recovered/Resolved]
  - Cardiac failure congestive [Recovered/Resolved with Sequelae]
  - Hepatic function abnormal [Recovered/Resolved]
  - Nasopharyngitis [Recovered/Resolved]
  - Arrhythmia supraventricular [Recovered/Resolved]
  - Supraventricular tachycardia [Recovered/Resolved]
  - Cardiomegaly [Recovered/Resolved with Sequelae]
  - Condition aggravated [Recovering/Resolving]
  - Malaise [Recovering/Resolving]
  - Decubitus ulcer [Recovering/Resolving]
  - Infection [Recovering/Resolving]
  - Pulmonary hypertension [Recovered/Resolved]
  - Cough [Recovered/Resolved with Sequelae]
  - Respiratory disorder [Recovered/Resolved with Sequelae]
  - Dehydration [Recovered/Resolved]
  - Pulmonary oedema [Recovering/Resolving]
  - Pleural effusion [Recovered/Resolved with Sequelae]
  - Diarrhoea [Recovering/Resolving]

NARRATIVE: CASE EVENT DATE: 20160912
